FAERS Safety Report 7137598-9 (Version None)
Quarter: 2010Q4

REPORT INFORMATION
  Report Type: 
  Country: None (occurrence: None)
  Receive Date: 20101206
  Receipt Date: 20101129
  Transmission Date: 20110411
  Serious: Yes (Other)
  Sender: FDA-Public Use
  Company Number: US-JNJFOC-20101200785

PATIENT
  Sex: Female
  Weight: 71.22 kg

DRUGS (3)
  1. ORTHO-NOVUM 7/7/7-21 [Suspect]
     Indication: MIGRAINE
     Dosage: NDC NUMBER- 0062-1781-00
     Route: 048
  2. ORTHO-NOVUM 7/7/7-21 [Suspect]
     Indication: CONTRACEPTION
     Dosage: NDC NUMBER- 0062-1781-00
     Route: 048
  3. ZOMIG [Concomitant]
     Indication: MIGRAINE
     Route: 048

REACTIONS (7)
  - BLOOD CHOLESTEROL INCREASED [None]
  - HEADACHE [None]
  - INSOMNIA [None]
  - METRORRHAGIA [None]
  - NERVOUSNESS [None]
  - OFF LABEL USE [None]
  - PRODUCT QUALITY ISSUE [None]
